FAERS Safety Report 8091070-0 (Version None)
Quarter: 2012Q1

REPORT INFORMATION
  Report Type: 
  Country: None (occurrence: None)
  Receive Date: 20120129
  Receipt Date: 20111020
  Transmission Date: 20120608
  Serious: No
  Sender: FDA-Public Use
  Company Number: US-ABBOTT-11P-163-0867040-00

PATIENT
  Sex: Male
  Weight: 74.456 kg

DRUGS (13)
  1. HUMIRA [Suspect]
     Indication: CROHN'S DISEASE
  2. ALLOPURINOL [Concomitant]
     Indication: GOUT
  3. WELLBUTRIN [Concomitant]
     Indication: DEPRESSION
  4. ASCAL [Concomitant]
     Indication: CROHN'S DISEASE
  5. MULTI-VITAMIN [Concomitant]
     Indication: VITAMIN SUPPLEMENTATION
  6. FLAGYL [Concomitant]
     Indication: CROHN'S DISEASE
  7. NSAID'S [Concomitant]
     Indication: ARTHRALGIA
  8. CYMBALTA [Concomitant]
     Indication: DEPRESSION
  9. LORAZEPAM [Concomitant]
     Indication: ANXIETY
  10. CALCIUM [Concomitant]
     Indication: MINERAL SUPPLEMENTATION
  11. HUMIRA [Suspect]
     Route: 058
     Dates: start: 20110301
  12. ATENOLOL [Concomitant]
     Indication: HYPERTENSION
  13. ASPIRIN [Concomitant]
     Indication: PRODUCT USED FOR UNKNOWN INDICATION

REACTIONS (7)
  - ALANINE AMINOTRANSFERASE INCREASED [None]
  - HEPATIC ENZYME INCREASED [None]
  - RED BLOOD CELL COUNT DECREASED [None]
  - COLONIC STENOSIS [None]
  - ARTHRALGIA [None]
  - LIPASE INCREASED [None]
  - AMYLASE INCREASED [None]
